FAERS Safety Report 6959397-0 (Version None)
Quarter: 2010Q3

REPORT INFORMATION
  Report Type: 
  Country: None (occurrence: None)
  Receive Date: 20100831
  Receipt Date: 20100826
  Transmission Date: 20110219
  Serious: Yes (Life-Threatening)
  Sender: FDA-Public Use
  Company Number: US-MERCK-1008USA03796

PATIENT
  Age: 87 Year
  Sex: Female

DRUGS (12)
  1. JANUVIA [Suspect]
     Indication: TYPE 2 DIABETES MELLITUS
     Route: 048
     Dates: start: 20070601
  2. GLIMEPIRIDE [Concomitant]
     Route: 065
  3. NEXIUM [Concomitant]
     Route: 065
  4. GABAPENTIN [Concomitant]
     Route: 065
  5. CLONAZEPAM [Concomitant]
     Route: 065
  6. LEVOTHYROXINE SODIUM [Concomitant]
     Route: 065
  7. ASPIRIN [Concomitant]
     Route: 065
  8. TEMODAL [Concomitant]
     Route: 065
  9. LIPITOR [Concomitant]
     Route: 065
  10. CARVEDILOL [Concomitant]
     Route: 065
  11. LORA TAB [Concomitant]
     Route: 065
  12. MELOXICAM [Concomitant]
     Route: 065

REACTIONS (1)
  - PANCREATIC DISORDER [None]
